FAERS Safety Report 5036617-3 (Version None)
Quarter: 2006Q2

REPORT INFORMATION
  Report Type: 
  Country: None (occurrence: None)
  Receive Date: 20060531
  Receipt Date: 20060425
  Transmission Date: 20061013
  Serious: No
  Sender: FDA-Public Use
  Company Number: PHEH2006US04629

PATIENT
  Age: 52 Year
  Sex: Male

DRUGS (4)
  1. EXJADE [Suspect]
     Indication: HAEMOSIDEROSIS
     Dosage: 2000 MG, QD, ORAL
     Route: 048
     Dates: start: 20060225
  2. FOLIC ACID [Concomitant]
  3. TESTOSTERONE [Concomitant]
  4. NAPROSYN [Concomitant]

REACTIONS (2)
  - DIARRHOEA [None]
  - DYSPEPSIA [None]
